FAERS Safety Report 24338450 (Version 2)
Quarter: 2024Q4

REPORT INFORMATION
  Report Type: Report from Study
  Country: IT (occurrence: IT)
  Receive Date: 20240919
  Receipt Date: 20241108
  Transmission Date: 20250115
  Serious: Yes (Other)
  Sender: NOVARTIS
  Company Number: IT-002147023-NVSC2024IT069879

PATIENT
  Age: 78 Year
  Sex: Female
  Weight: 46.2 kg

DRUGS (8)
  1. MEKINIST [Suspect]
     Active Substance: TRAMETINIB DIMETHYL SULFOXIDE
     Indication: Papillary thyroid cancer
     Dosage: 1.5 MG, QD
     Route: 048
     Dates: start: 20210803, end: 20240306
  2. TAFINLAR [Suspect]
     Active Substance: DABRAFENIB MESYLATE
     Indication: Papillary thyroid cancer
     Dosage: 100 MG, BID
     Route: 048
     Dates: start: 20210803, end: 20240306
  3. PREDNISONE [Concomitant]
     Active Substance: PREDNISONE
     Indication: Product used for unknown indication
     Dosage: UNK
     Route: 065
  4. PREDNISONE [Concomitant]
     Active Substance: PREDNISONE
     Dosage: 10 MG
     Route: 065
  5. Levopraid [Concomitant]
     Indication: Dyspepsia
     Dosage: 1 DOSAGE FORM
     Route: 065
  6. ACETAMINOPHEN [Concomitant]
     Active Substance: ACETAMINOPHEN
     Indication: Arthralgia
     Dosage: 1000 MG
     Route: 065
  7. BISOPROLOL [Concomitant]
     Active Substance: BISOPROLOL\BISOPROLOL FUMARATE
     Indication: Extrasystoles
     Dosage: 1.25 MG
     Route: 065
     Dates: start: 2020
  8. LEVOTHYROXINE [Concomitant]
     Active Substance: LEVOTHYROXINE
     Indication: Hypothyroidism
     Dosage: 75/100 MCG
     Route: 065
     Dates: start: 2002

REACTIONS (4)
  - Cholangitis sclerosing [Recovering/Resolving]
  - Drug-induced liver injury [Unknown]
  - Toxicity to various agents [Unknown]
  - Hepatic enzyme increased [Unknown]

NARRATIVE: CASE EVENT DATE: 20240306
